FAERS Safety Report 23141453 (Version 1)
Quarter: 2023Q4

REPORT INFORMATION
  Report Type: Spontaneous
  Country: DE (occurrence: DE)
  Receive Date: 20231103
  Receipt Date: 20231103
  Transmission Date: 20240109
  Serious: Yes (Hospitalization, Other)
  Sender: FDA-Public Use
  Company Number: DE-EPICPHARMA-DE-2023EPCLIT01563

PATIENT
  Age: 25 Year
  Sex: Male

DRUGS (1)
  1. DICLOFENAC SODIUM [Suspect]
     Active Substance: DICLOFENAC\DICLOFENAC SODIUM
     Indication: Neck pain
     Route: 061

REACTIONS (1)
  - Tubulointerstitial nephritis [Recovering/Resolving]
